FAERS Safety Report 25117527 (Version 1)
Quarter: 2025Q1

REPORT INFORMATION
  Report Type: Spontaneous
  Country: GB (occurrence: GB)
  Receive Date: 20250325
  Receipt Date: 20250325
  Transmission Date: 20250408
  Serious: Yes (Other)
  Sender: ABBVIE
  Company Number: None

PATIENT
  Age: 51 Year
  Sex: Female
  Weight: 54 kg

DRUGS (3)
  1. ATOGEPANT [Suspect]
     Active Substance: ATOGEPANT
     Indication: Migraine
     Dosage: 60 MG ONCE IN THE EVENING?LAST ADMIN DATE WAS MAR 2025
     Route: 048
     Dates: start: 20250310
  2. Topiramate torrent [Concomitant]
     Indication: Migraine
     Dates: start: 202411
  3. AMITRIPTYLINE [Concomitant]
     Active Substance: AMITRIPTYLINE
     Indication: Migraine
     Dates: start: 202207

REACTIONS (8)
  - Palpitations [Not Recovered/Not Resolved]
  - Swelling [Unknown]
  - Swollen tongue [Unknown]
  - Musculoskeletal stiffness [Not Recovered/Not Resolved]
  - Headache [Not Recovered/Not Resolved]
  - Neck pain [Unknown]
  - Swelling face [Unknown]
  - Head discomfort [Unknown]

NARRATIVE: CASE EVENT DATE: 20240314
